FAERS Safety Report 4976721-9 (Version None)
Quarter: 2006Q2

REPORT INFORMATION
  Report Type: 
  Country: None (occurrence: None)
  Receive Date: 20060419
  Receipt Date: 20051122
  Transmission Date: 20061013
  Serious: Yes (Hospitalization)
  Sender: FDA-Public Use
  Company Number: US-MERCK-0511USA04049

PATIENT
  Age: 68 Year
  Sex: Male
  Weight: 159 kg

DRUGS (9)
  1. VIOXX [Suspect]
     Indication: ARTHROPATHY
     Route: 048
     Dates: start: 20010401, end: 20040901
  2. VERAPAMIL [Concomitant]
     Route: 065
  3. LEVAQUIN [Concomitant]
     Route: 065
  4. TOPROL-XL [Concomitant]
     Route: 065
  5. PROSCAR [Concomitant]
     Route: 065
  6. HYTRIN [Concomitant]
     Route: 065
  7. ASPIRIN [Concomitant]
     Route: 065
  8. ALTACE [Concomitant]
     Route: 065
  9. FLOMAX (MORNIFLUMATE) [Concomitant]
     Route: 065

REACTIONS (13)
  - ABDOMINAL PAIN [None]
  - BLOOD CHOLESTEROL INCREASED [None]
  - BRONCHITIS [None]
  - CARDIAC FAILURE CONGESTIVE [None]
  - CEREBROVASCULAR ACCIDENT [None]
  - CHEST PAIN [None]
  - CHRONIC OBSTRUCTIVE PULMONARY DISEASE [None]
  - CORONARY ARTERY DISEASE [None]
  - FLANK PAIN [None]
  - HYPERCHOLESTEROLAEMIA [None]
  - HYPOXIA [None]
  - SEPSIS [None]
  - SLEEP APNOEA SYNDROME [None]
